FAERS Safety Report 19115292 (Version 5)
Quarter: 2022Q3

REPORT INFORMATION
  Report Type: Spontaneous
  Country: US (occurrence: US)
  Receive Date: 20210409
  Receipt Date: 20220714
  Transmission Date: 20221026
  Serious: No
  Sender: FDA-Public Use
  Company Number: US-SA-SAC20210402001133

PATIENT
  Age: 33 Year
  Sex: Female

DRUGS (2)
  1. DUPIXENT [Suspect]
     Active Substance: DUPILUMAB
     Indication: Dermatitis atopic
     Dosage: UNK
     Route: 058
     Dates: start: 201704
  2. DUPIXENT [Suspect]
     Active Substance: DUPILUMAB
     Indication: Dermatitis atopic
     Dosage: UNK
     Route: 058

REACTIONS (6)
  - Injection site pain [Unknown]
  - Injection site reaction [Recovered/Resolved]
  - Injection site urticaria [Recovered/Resolved]
  - Pruritus [Recovered/Resolved]
  - Skin swelling [Recovered/Resolved]
  - Dermatitis atopic [Not Recovered/Not Resolved]
